FAERS Safety Report 13918440 (Version 1)
Quarter: 2017Q3

REPORT INFORMATION
  Report Type: Spontaneous
  Country: US (occurrence: US)
  Receive Date: 20170829
  Receipt Date: 20170829
  Transmission Date: 20171127
  Serious: Yes (Hospitalization)
  Sender: FDA-Public Use
  Company Number: US-ACTELION-A-US2017-158655

PATIENT
  Age: 60 Year
  Sex: Female

DRUGS (7)
  1. TYVASO [Suspect]
     Active Substance: TREPROSTINIL
     Dosage: 18 MCG, QID
     Route: 055
  2. UPTRAVI [Suspect]
     Active Substance: SELEXIPAG
     Dosage: 600 UNK, BID
     Route: 048
  3. TYVASO [Suspect]
     Active Substance: TREPROSTINIL
     Dosage: 54 MCG, QID
     Route: 055
  4. TYVASO [Suspect]
     Active Substance: TREPROSTINIL
     Indication: PRODUCT USED FOR UNKNOWN INDICATION
     Dosage: 72 MCG, QID, 12 BREATHS/PUFFS
     Route: 055
  5. UPTRAVI [Suspect]
     Active Substance: SELEXIPAG
     Dosage: 400 UNK, BID
     Route: 048
  6. TYVASO [Suspect]
     Active Substance: TREPROSTINIL
     Dosage: 36 MCG, QID
     Route: 055
  7. UPTRAVI [Suspect]
     Active Substance: SELEXIPAG
     Indication: PRODUCT USED FOR UNKNOWN INDICATION
     Dosage: 200 UNK, BID
     Route: 048

REACTIONS (4)
  - Malaise [Unknown]
  - Cardiac disorder [Unknown]
  - Feeling abnormal [Unknown]
  - Pulmonary oedema [Unknown]
